FAERS Safety Report 25778077 (Version 2)
Quarter: 2025Q3

REPORT INFORMATION
  Report Type: Spontaneous
  Country: RU (occurrence: RU)
  Receive Date: 20250909
  Receipt Date: 20250930
  Transmission Date: 20251021
  Serious: Yes (Life-Threatening, Hospitalization, Other)
  Sender: RANBAXY
  Company Number: RU-SUN PHARMACEUTICAL INDUSTRIES LTD-2025R1-525870

PATIENT
  Age: 16 Year
  Sex: Female

DRUGS (2)
  1. SOTRET [Suspect]
     Active Substance: ISOTRETINOIN
     Indication: Acne
     Dosage: 30 MILLIGRAM, QD
     Route: 065
     Dates: start: 20250702, end: 20250807
  2. METIPRED [Concomitant]
     Active Substance: METHYLPREDNISOLONE
     Indication: Hormone level abnormal
     Route: 065

REACTIONS (4)
  - Adenocarcinoma of colon [Unknown]
  - Metastases to ovary [Unknown]
  - Metastases to liver [Unknown]
  - Metastases to kidney [Unknown]
